FAERS Safety Report 12904633 (Version 1)
Quarter: 2016Q4

REPORT INFORMATION
  Report Type: Spontaneous
  Country: BR (occurrence: BR)
  Receive Date: 20161102
  Receipt Date: 20161102
  Transmission Date: 20170207
  Serious: Yes (Other)
  Sender: FDA-Public Use
  Company Number: BR-PFIZER INC-2016507994

PATIENT
  Sex: Female
  Weight: 62 kg

DRUGS (9)
  1. PRISTIQ EXTENDED-RELEASE [Suspect]
     Active Substance: DESVENLAFAXINE SUCCINATE
     Indication: DEPRESSION
     Dosage: UNK UNK, 1X/DAY
     Route: 048
     Dates: start: 2012
  2. FISIOGEL [Concomitant]
     Dosage: UNK
  3. AAS [Concomitant]
     Active Substance: ASPIRIN
     Dosage: UNK
  4. ENDOFOLIN [Concomitant]
     Active Substance: FOLIC ACID
     Dosage: UNK
  5. GARDENAL /00023201/ [Concomitant]
     Active Substance: PHENOBARBITAL
     Dosage: UNK
  6. CLOPIDOGREL [Concomitant]
     Active Substance: CLOPIDOGREL BISULFATE
     Dosage: UNK
  7. ROSUCOR [Concomitant]
     Active Substance: ROSUVASTATIN CALCIUM
     Dosage: UNK
  8. MACRODANTIN [Concomitant]
     Active Substance: NITROFURANTOIN
     Dosage: UNK
  9. CARVEDILOL. [Concomitant]
     Active Substance: CARVEDILOL
     Dosage: UNK

REACTIONS (1)
  - Infarction [Unknown]

NARRATIVE: CASE EVENT DATE: 201606
